FAERS Safety Report 9373000 (Version 1)
Quarter: 2013Q2

REPORT INFORMATION
  Report Type: Spontaneous
  Country: US (occurrence: US)
  Receive Date: 20130627
  Receipt Date: 20130627
  Transmission Date: 20140414
  Serious: No
  Sender: FDA-Public Use
  Company Number: US-B.I. PHARMACEUTICALS,INC./RIDGEFIELD-2013-BI-18011BP

PATIENT
  Age: 65 Year
  Sex: Female
  Weight: 102 kg

DRUGS (11)
  1. TRADJENTA [Suspect]
     Indication: TYPE 2 DIABETES MELLITUS
     Dosage: 5 MG
     Route: 048
     Dates: start: 201304, end: 20130502
  2. TIROSINT [Concomitant]
     Dosage: 112 MCG
  3. METFORMIN [Concomitant]
     Dosage: 1000 MG
  4. FOLIC ACID [Concomitant]
     Dosage: 0.8 MCG
  5. SINGULAR [Concomitant]
     Dosage: 10 MG
  6. AZATHIOPRINE [Concomitant]
     Dosage: 50 MG
  7. ADVAIR DISKUS [Concomitant]
     Dosage: STRENGTH: 500 MCG/50 MCG; DAILY DOSE: 1000 MCG/ 100 MCG
  8. PRAVACHOL [Concomitant]
     Dosage: 20 MG
  9. LANTUS [Concomitant]
     Dosage: DAILY DOSE: 40 UNITS, DOSING WAS 12 UNITS IN THE EVENING AND 28 UNITS IN THE MORNING
     Route: 058
  10. PROVENTIL [Concomitant]
     Route: 055
  11. FOLTRATE [Concomitant]
     Dosage: STRENGTH: 500/1; DAILY DOSE: 500/1

REACTIONS (1)
  - Urticaria [Recovered/Resolved]
